FAERS Safety Report 13935616 (Version 2)
Quarter: 2017Q3

REPORT INFORMATION
  Report Type: Spontaneous
  Country: US (occurrence: US)
  Receive Date: 20170905
  Receipt Date: 20170907
  Transmission Date: 20171127
  Serious: No
  Sender: FDA-Public Use
  Company Number: US-GE HEALTHCARE LIFE SCIENCES-2017CSU002513

PATIENT
  Age: 73 Year
  Sex: Female
  Weight: 77.1 kg

DRUGS (1)
  1. OMNIPAQUE [Suspect]
     Active Substance: IOHEXOL
     Indication: PERIPHERAL VASCULAR DISORDER
     Dosage: 180 ML, SINGLE
     Route: 042
     Dates: start: 20170726, end: 20170726

REACTIONS (1)
  - Contrast media allergy [Recovered/Resolved]

NARRATIVE: CASE EVENT DATE: 20170726
